FAERS Safety Report 9804359 (Version 2)
Quarter: 2014Q1

REPORT INFORMATION
  Report Type: Spontaneous
  Country: US (occurrence: US)
  Receive Date: 20140108
  Receipt Date: 20140130
  Transmission Date: 20141002
  Serious: Yes (Death)
  Sender: FDA-Public Use
  Company Number: US-INCYTE CORPORATION-2014IN000020

PATIENT
  Age: 71 Year
  Sex: Male
  Weight: 93 kg

DRUGS (17)
  1. JAKAFI [Suspect]
     Indication: MYELOFIBROSIS
     Dosage: 15 MG, BID
     Route: 048
     Dates: start: 201307, end: 20131225
  2. FUROSEMIDE [Concomitant]
     Dosage: 40 MG, BID
  3. VICODIN [Concomitant]
  4. LOVENOX [Concomitant]
     Dosage: 80 MG EVERY TWELVE HOURS
     Route: 058
  5. POTASSIUM CHLORIDE [Concomitant]
     Dosage: 10 MG EQ TWICE DAILY 2 IN THE MORNING AND 1 IN THE EVENING
     Route: 048
  6. LISINOPRIL AND HYDROCHLOROTHIAZIDE [Concomitant]
  7. OMEPRAZOLE [Concomitant]
     Dosage: 20 MG, TID
  8. HYDROXYUREA [Concomitant]
  9. MILK THISTLE [Concomitant]
     Dosage: 1 BY MOUTH ONCE DAILY
  10. MAGNESIUM [Concomitant]
     Dosage: 400 MG, QD
  11. VITAMIN B 100               /00003501/ [Concomitant]
  12. ASPIRIN [Concomitant]
     Dosage: 81 MG, QD
  13. BENADRYL                           /00000402/ [Concomitant]
     Dosage: 1AS NEEDED
     Route: 048
  14. FENTANYL [Concomitant]
     Dosage: 12MCG/HR 1 PATCH WVERY 72 HOURS AS NEEDED
     Route: 061
  15. CRESTOR [Concomitant]
     Dosage: 5 MG, QD
  16. OXYCODONE [Concomitant]
     Dosage: 5 MG, 1/2 OR 1 TABLET EVERY TWO HOURS AS NEEDED
     Route: 048
  17. THIAMINE HCL [Concomitant]
     Dosage: 100 MG, QD
     Route: 048

REACTIONS (3)
  - Cardiac failure congestive [Fatal]
  - Cardiac enzymes increased [Fatal]
  - Haematoma [Fatal]
